FAERS Safety Report 6776734-0 (Version None)
Quarter: 2010Q2

REPORT INFORMATION
  Report Type: 
  Country: None (occurrence: None)
  Receive Date: 20100617
  Receipt Date: 20100617
  Transmission Date: 20101027
  Serious: Yes (Death)
  Sender: FDA-Public Use
  Company Number: None

PATIENT
  Age: 89 Year
  Sex: Female

DRUGS (1)
  1. ZOSYN [Suspect]
     Indication: SEPSIS
     Dosage: 2.25 G Q6HR IV
     Route: 042
     Dates: start: 20100115, end: 20100119

REACTIONS (2)
  - SEPSIS [None]
  - THROMBOCYTOPENIA [None]
